FAERS Safety Report 24750444 (Version 1)
Quarter: 2024Q4

REPORT INFORMATION
  Report Type: Spontaneous
  Country: US (occurrence: US)
  Receive Date: 20241218
  Receipt Date: 20241218
  Transmission Date: 20250115
  Serious: No
  Sender: Unknown Manufacturer
  Company Number: US-STALCOR-2024-AER-02795

PATIENT
  Sex: Female
  Weight: 68.49 kg

DRUGS (10)
  1. POLLENS - TREES, GS HICKORY-PECAN MIX [Suspect]
     Active Substance: CARYA ILLINOINENSIS POLLEN\CARYA OVATA POLLEN
     Indication: Rhinitis allergic
     Route: 058
     Dates: start: 20240616
  2. RUSSIAN THISTLE [Suspect]
     Active Substance: SALSOLA KALI POLLEN
     Indication: Rhinitis allergic
     Route: 058
     Dates: start: 20240616
  3. ASPERGILLUS NIGER VAR NIGER [Suspect]
     Active Substance: ASPERGILLUS NIGER VAR. NIGER
     Indication: Rhinitis allergic
     Route: 058
     Dates: start: 20240616
  4. BOTRYTIS CINEREA [Suspect]
     Active Substance: BOTRYTIS CINEREA
     Indication: Rhinitis allergic
     Route: 058
     Dates: start: 20240616
  5. PENICILLIUM CHRYSOGENUM [Suspect]
     Active Substance: PENICILLIUM CHRYSOGENUM VAR. CHRYSOGENUM
     Indication: Rhinitis allergic
     Route: 058
     Dates: start: 20240616
  6. STEMPHYLIUM SOLANI [Suspect]
     Active Substance: STEMPHYLIUM SOLANI
     Indication: Rhinitis allergic
     Route: 058
     Dates: start: 20240616
  7. STANDARDIZED MITE MIX [Suspect]
     Active Substance: DERMATOPHAGOIDES FARINAE\DERMATOPHAGOIDES PTERONYSSINUS
     Indication: Rhinitis allergic
     Route: 058
     Dates: start: 20240616
  8. STANDARDIZED CAT HAIR [Suspect]
     Active Substance: FELIS CATUS HAIR
     Indication: Rhinitis allergic
     Route: 058
     Dates: start: 20240616
  9. VITAMINS [Concomitant]
     Active Substance: VITAMINS
     Indication: Product used for unknown indication
     Route: 065
  10. OMEGA 3 OIL [Concomitant]
     Indication: Product used for unknown indication
     Route: 065

REACTIONS (4)
  - Brain fog [Not Recovered/Not Resolved]
  - Disturbance in attention [Not Recovered/Not Resolved]
  - Fatigue [Not Recovered/Not Resolved]
  - Tinnitus [Not Recovered/Not Resolved]
